FAERS Safety Report 6766777-5 (Version None)
Quarter: 2010Q2

REPORT INFORMATION
  Report Type: 
  Country: None (occurrence: None)
  Receive Date: 20100611
  Receipt Date: 20100601
  Transmission Date: 20101027
  Serious: No
  Sender: FDA-Public Use
  Company Number: FR-ELI_LILLY_AND_COMPANY-FR201004004995

PATIENT
  Age: 40 Year
  Sex: Female

DRUGS (4)
  1. ZYPREXA [Suspect]
     Indication: AFFECTIVE DISORDER
     Dosage: 20 MG, DAILY (1/D)
     Route: 048
     Dates: start: 20100224, end: 20100322
  2. VALIUM [Concomitant]
     Indication: ANXIETY
     Dosage: 30 MG, DAILY (1/D)
     Route: 048
     Dates: start: 20100224, end: 20100415
  3. IMOVANE [Concomitant]
     Indication: INSOMNIA
     Dosage: 7.5 MG, DAILY (1/D)
     Route: 048
     Dates: start: 20100224, end: 20100505
  4. DEPAKOTE [Concomitant]
     Indication: AFFECTIVE DISORDER
     Dosage: 1 G, DAILY (1/D)
     Route: 048
     Dates: start: 20100309, end: 20100509

REACTIONS (3)
  - NEUTROPENIA [None]
  - OFF LABEL USE [None]
  - PERSECUTORY DELUSION [None]
